FAERS Safety Report 9484326 (Version 1)
Quarter: 2013Q3

REPORT INFORMATION
  Report Type: Spontaneous
  Country: US (occurrence: US)
  Receive Date: 20130828
  Receipt Date: 20130828
  Transmission Date: 20140515
  Serious: Yes (Hospitalization, Other)
  Sender: FDA-Public Use
  Company Number: US-AMGEN-KDL409273

PATIENT
  Age: 59 Year
  Sex: Female

DRUGS (1)
  1. ENBREL [Suspect]
     Indication: PSORIASIS
     Dosage: 50 MG, QWK
     Route: 058

REACTIONS (22)
  - Thyroid neoplasm [Unknown]
  - Blood calcium decreased [Unknown]
  - Weight decreased [Unknown]
  - Abdominal discomfort [Unknown]
  - Dehydration [Unknown]
  - Blood potassium abnormal [Unknown]
  - Oropharyngeal pain [Unknown]
  - Blood calcium abnormal [Unknown]
  - Depression [Unknown]
  - Hypersensitivity [Unknown]
  - Candida infection [Unknown]
  - Hair growth abnormal [Recovered/Resolved]
  - Muscle twitching [Unknown]
  - Nail growth abnormal [Recovered/Resolved]
  - Memory impairment [Recovered/Resolved]
  - Dry skin [Recovered/Resolved]
  - Balance disorder [Recovered/Resolved]
  - Fall [Recovered/Resolved]
  - Nasopharyngitis [Unknown]
  - Fungal infection [Unknown]
  - Psoriasis [Not Recovered/Not Resolved]
  - Injection site pain [Unknown]
